FAERS Safety Report 14558998 (Version 1)
Quarter: 2018Q1

REPORT INFORMATION
  Report Type: Spontaneous
  Country: NL (occurrence: NL)
  Receive Date: 20180221
  Receipt Date: 20180221
  Transmission Date: 20180509
  Serious: Yes (Hospitalization)
  Sender: FDA-Public Use
  Company Number: NL-TEVA-2018-NL-857637

PATIENT
  Age: 23 Year
  Sex: Female
  Weight: 114 kg

DRUGS (1)
  1. DESOGESTREL W/ETHINYLESTRADIOL TABLET, 30/150 ?G (MICROGRAM) [Suspect]
     Active Substance: DESOGESTREL\ETHINYL ESTRADIOL
     Indication: CONTRACEPTION
     Dosage: ONCE A DAY ONE PIECE
     Route: 065
     Dates: start: 2009, end: 20171208

REACTIONS (2)
  - Hepatic adenoma [Recovered/Resolved with Sequelae]
  - Hepatic haemorrhage [Recovered/Resolved with Sequelae]

NARRATIVE: CASE EVENT DATE: 20171208
